FAERS Safety Report 7486972-X (Version None)
Quarter: 2011Q2

REPORT INFORMATION
  Report Type: 
  Country: None (occurrence: None)
  Receive Date: 20110517
  Receipt Date: 20110503
  Transmission Date: 20111010
  Serious: Yes (Death)
  Sender: FDA-Public Use
  Company Number: US-AMGEN-KDL402318

PATIENT
  Age: 62 Year
  Sex: Male
  Weight: 105.3 kg

DRUGS (6)
  1. FLUOROURACIL [Concomitant]
     Dosage: UNK UNK, UNK
     Dates: start: 20100323
  2. NPLATE [Suspect]
     Dosage: 125 A?G, UNK
     Dates: end: 20100603
  3. BEVACIZUMAB [Concomitant]
     Dosage: UNK UNK, UNK
  4. LEUCOVORIN CALCIUM [Concomitant]
     Dosage: UNK UNK, UNK
     Dates: start: 20100323
  5. OXALIPLATIN [Concomitant]
     Dosage: UNK UNK, UNK
     Dates: start: 20100323
  6. NPLATE [Suspect]
     Indication: IDIOPATHIC THROMBOCYTOPENIC PURPURA
     Dosage: 250 A?G, UNK
     Route: 058
     Dates: start: 20100325

REACTIONS (3)
  - BONE PAIN [None]
  - NEOPLASM MALIGNANT [None]
  - PAIN IN EXTREMITY [None]
